FAERS Safety Report 17025674 (Version 5)
Quarter: 2025Q1

REPORT INFORMATION
  Report Type: Spontaneous
  Country: US (occurrence: US)
  Receive Date: 20191113
  Receipt Date: 20250306
  Transmission Date: 20250408
  Serious: Yes (Hospitalization)
  Sender: VERTEX
  Company Number: US-VERTEX PHARMACEUTICALS-2019-010946

PATIENT
  Age: 6 Year
  Sex: Male
  Weight: 36 kg

DRUGS (12)
  1. SYMDEKO [Suspect]
     Active Substance: IVACAFTOR\TEZACAFTOR
     Indication: Cystic fibrosis
     Dosage: 50MG TEZACAFTOR/75MG IVACAFTOR AM; 75MG IVACAFTOR PM
     Route: 048
     Dates: start: 20190905, end: 20190912
  2. ALBUTEROL SULFATE [Concomitant]
     Active Substance: ALBUTEROL SULFATE
  3. SODIUM CHLORIDE [Concomitant]
     Active Substance: SODIUM CHLORIDE
  4. Lc plus [Concomitant]
  5. VITAMINS [Concomitant]
     Active Substance: VITAMINS
  6. PULMOZYME [Concomitant]
     Active Substance: DORNASE ALFA
  7. PULMOZYME [Concomitant]
     Active Substance: DORNASE ALFA
  8. URSODIOL [Concomitant]
     Active Substance: URSODIOL
  9. VENTOLIN HFA [Concomitant]
     Active Substance: ALBUTEROL SULFATE
  10. VYVANSE [Concomitant]
     Active Substance: LISDEXAMFETAMINE DIMESYLATE
  11. GUANFACINE HYDROCHLORIDE [Concomitant]
     Active Substance: GUANFACINE HYDROCHLORIDE
  12. CREON [Concomitant]
     Active Substance: PANCRELIPASE AMYLASE\PANCRELIPASE LIPASE\PANCRELIPASE PROTEASE

REACTIONS (3)
  - Pneumonia pseudomonal [Recovered/Resolved]
  - Psychiatric symptom [Recovered/Resolved]
  - Drug hypersensitivity [Unknown]

NARRATIVE: CASE EVENT DATE: 20190901
